FAERS Safety Report 7249185-2 (Version None)
Quarter: 2011Q1

REPORT INFORMATION
  Report Type: 
  Country: None (occurrence: None)
  Receive Date: 20110119
  Receipt Date: 20110103
  Transmission Date: 20110831
  Serious: Yes (Death, Hospitalization, Other)
  Sender: FDA-Public Use
  Company Number: JPI-P-004223

PATIENT
  Age: 69 Year
  Sex: Male

DRUGS (8)
  1. XYREM [Suspect]
     Indication: CATAPLEXY
     Dosage: SEE IMAGE, ORAL
     Route: 048
     Dates: start: 20080404, end: 20080101
  2. XYREM [Suspect]
     Indication: NARCOLEPSY
     Dosage: SEE IMAGE, ORAL
     Route: 048
     Dates: start: 20080404, end: 20080101
  3. XYREM [Suspect]
     Indication: CATAPLEXY
     Dosage: SEE IMAGE, ORAL
     Route: 048
     Dates: start: 20080101, end: 20080101
  4. XYREM [Suspect]
     Indication: NARCOLEPSY
     Dosage: SEE IMAGE, ORAL
     Route: 048
     Dates: start: 20080101, end: 20080101
  5. XYREM [Suspect]
     Indication: CATAPLEXY
     Dosage: SEE IMAGE, ORAL
     Route: 048
     Dates: start: 20080101, end: 20081101
  6. XYREM [Suspect]
     Indication: NARCOLEPSY
     Dosage: SEE IMAGE, ORAL
     Route: 048
     Dates: start: 20080101, end: 20081101
  7. METHYLPHENIDATE HCL [Concomitant]
  8. ANTICOAGULANTS [Suspect]
     Indication: PRODUCT USED FOR UNKNOWN INDICATION

REACTIONS (14)
  - HYPOAESTHESIA [None]
  - HYPOTHYROIDISM [None]
  - DYSPEPSIA [None]
  - BRADYCARDIA [None]
  - FEELING OF BODY TEMPERATURE CHANGE [None]
  - ARTERIAL DISORDER [None]
  - CAROTID ARTERY STENOSIS [None]
  - NERVOUSNESS [None]
  - PRURITUS [None]
  - HAEMATOMA [None]
  - FALL [None]
  - CEREBROVASCULAR ACCIDENT [None]
  - OVERDOSE [None]
  - RENAL FAILURE CHRONIC [None]
